FAERS Safety Report 11689454 (Version 1)
Quarter: 2015Q4

REPORT INFORMATION
  Report Type: Other
  Country: IL (occurrence: IL)
  Receive Date: 20151102
  Receipt Date: 20151102
  Transmission Date: 20160304
  Serious: Yes (Hospitalization)
  Sender: FDA-Public Use
  Company Number: IL-JUBILANT GENERICS LIMITED-1043628

PATIENT
  Age: 78 Year
  Sex: Female

DRUGS (6)
  1. OLANZAPINE. [Suspect]
     Active Substance: OLANZAPINE
  2. CITALOPRAM [Concomitant]
     Active Substance: CITALOPRAM HYDROBROMIDE
  3. LANSOPRAZOLE. [Concomitant]
     Active Substance: LANSOPRAZOLE
  4. MEMANTINE. [Concomitant]
     Active Substance: MEMANTINE
  5. DONEPEZIL HYDROCHLORIDE. [Concomitant]
     Active Substance: DONEPEZIL HYDROCHLORIDE
  6. SIMVASTATIN. [Concomitant]
     Active Substance: SIMVASTATIN

REACTIONS (1)
  - Angle closure glaucoma [Recovering/Resolving]

NARRATIVE: CASE EVENT DATE: 20151019
